FAERS Safety Report 21962439 (Version 3)
Quarter: 2023Q1

REPORT INFORMATION
  Report Type: Report from Study
  Country: US (occurrence: US)
  Receive Date: 20230207
  Receipt Date: 20230309
  Transmission Date: 20230418
  Serious: Yes (Hospitalization, Other)
  Sender: FDA-Public Use
  Company Number: US-PFIZER INC-PV202300016763

PATIENT
  Age: 25 Year
  Sex: Female
  Weight: 64.7 kg

DRUGS (8)
  1. VINCRISTINE SULFATE [Suspect]
     Active Substance: VINCRISTINE SULFATE
     Dosage: 1.5 MG/M2 (MAXIMUM 2 MG), CYCLIC (ON DAYS 15, 22, 43, AND 50)
     Route: 042
     Dates: start: 20220225, end: 20220304
  2. CYTARABINE [Suspect]
     Active Substance: CYTARABINE
     Dosage: 75 MG/M2, CYCLIC (IV OR SC ON DAYS 1-4, 8-11, 29-32, AND 36-39)
     Dates: start: 20220121, end: 20220121
  3. METHOTREXATE SODIUM [Suspect]
     Active Substance: METHOTREXATE SODIUM
     Dosage: 15 MG, CYCLIC (ON DAYS 1, 8, 15, AND 22)
     Route: 037
     Dates: start: 20220121, end: 20220304
  4. RITUXIMAB [Suspect]
     Active Substance: RITUXIMAB
     Dosage: 375 MG/M2, CYCLIC (ON DAYS 1 AND 8 AND THEN AGAIN ON DAYS 29 AND 36)
     Route: 042
     Dates: start: 20220121, end: 20220218
  5. CYCLOPHOSPHAMIDE [Suspect]
     Active Substance: CYCLOPHOSPHAMIDE
     Dosage: 1000 MG/M2, CYCLIC (DAY 1 AND 29)
     Route: 042
     Dates: start: 20220121, end: 20220121
  6. DEXAMETHASONE [Suspect]
     Active Substance: DEXAMETHASONE
     Dosage: UNK
     Dates: start: 20220121, end: 20220214
  7. MERCAPTOPURINE [Suspect]
     Active Substance: MERCAPTOPURINE
     Dosage: 60 MG/M2, CYCLIC (ON DAYS 1-14 AND 29-42)
     Route: 048
     Dates: start: 20220121, end: 20220204
  8. ONCASPAR [Suspect]
     Active Substance: PEGASPARGASE
     Dosage: 2000 UNITS/M2, CYCLIC (ON DAYS 15 AND 43)
     Route: 042
     Dates: start: 20220225, end: 20220225

REACTIONS (2)
  - Clostridium colitis [Recovered/Resolved]
  - Pyrexia [Recovered/Resolved]

NARRATIVE: CASE EVENT DATE: 20220322
